FAERS Safety Report 6906007-4 (Version None)
Quarter: 2010Q3

REPORT INFORMATION
  Report Type: 
  Country: None (occurrence: None)
  Receive Date: 20100804
  Receipt Date: 20100722
  Transmission Date: 20110219
  Serious: Yes (Other)
  Sender: FDA-Public Use
  Company Number: PHHY2010JP48645

PATIENT

DRUGS (2)
  1. METOPIRONE [Suspect]
     Indication: PITUITARY-DEPENDENT CUSHING'S SYNDROME
     Route: 048
  2. METOPIRONE [Suspect]

REACTIONS (2)
  - DYSPHAGIA [None]
  - INCORRECT ROUTE OF DRUG ADMINISTRATION [None]
